FAERS Safety Report 12354031 (Version 9)
Quarter: 2018Q3

REPORT INFORMATION
  Report Type: Report from Study
  Country: US (occurrence: US)
  Receive Date: 20160511
  Receipt Date: 20180928
  Transmission Date: 20181010
  Serious: Yes (Other)
  Sender: FDA-Public Use
  Company Number: US-AMGEN-USASP2016052749

PATIENT
  Age: 82 Year
  Sex: Female

DRUGS (8)
  1. ENBREL [Suspect]
     Active Substance: ETANERCEPT
     Dosage: 50 MG, QWK
     Route: 058
  2. ENBREL [Suspect]
     Active Substance: ETANERCEPT
     Dosage: UNK
     Route: 065
  3. ZITHROMAX [Suspect]
     Active Substance: AZITHROMYCIN DIHYDRATE
     Indication: NASOPHARYNGITIS
     Dosage: UNK
     Route: 065
  4. ENBREL [Suspect]
     Active Substance: ETANERCEPT
     Dosage: UNK
     Route: 065
  5. ENBREL [Suspect]
     Active Substance: ETANERCEPT
     Dosage: 50 MG, QWK
     Route: 065
  6. ARMOUR THYROID [Concomitant]
     Active Substance: THYROID, PORCINE
     Dosage: UNK
  7. ISTALOL [Concomitant]
     Active Substance: TIMOLOL MALEATE
     Dosage: UNK
  8. ENBREL [Suspect]
     Active Substance: ETANERCEPT
     Indication: PRODUCT USED FOR UNKNOWN INDICATION
     Dosage: 50 MG, WEEKLY
     Route: 058
     Dates: start: 2012

REACTIONS (18)
  - Accidental exposure to product [Unknown]
  - Blindness [Unknown]
  - Joint swelling [Unknown]
  - Malaise [Unknown]
  - Drug dose omission [Unknown]
  - Arthralgia [Unknown]
  - Peripheral swelling [Unknown]
  - Depression [Unknown]
  - Injection site pain [Unknown]
  - Pain [Unknown]
  - Diarrhoea [Recovered/Resolved]
  - Rash [Unknown]
  - Nasopharyngitis [Recovered/Resolved]
  - Frustration tolerance decreased [Unknown]
  - Somnolence [Unknown]
  - Psoriasis [Unknown]
  - Fatigue [Unknown]
  - Neuropathy peripheral [Unknown]

NARRATIVE: CASE EVENT DATE: 201605
